FAERS Safety Report 4726928-0 (Version None)
Quarter: 2005Q3

REPORT INFORMATION
  Report Type: 
  Country: None (occurrence: None)
  Receive Date: 20050725
  Receipt Date: 20050725
  Transmission Date: 20060218
  Serious: Yes (Hospitalization)
  Sender: FDA-Public Use
  Company Number: None

PATIENT
  Age: 15 Year
  Sex: Female
  Weight: 47.6277 kg

DRUGS (1)
  1. GEODON [Suspect]
     Indication: CONVULSION
     Dosage: 2 X 80 MG DAILY ORAL
     Route: 048
     Dates: start: 20050717, end: 20050717

REACTIONS (3)
  - CONVULSION [None]
  - FALL [None]
  - LOSS OF CONSCIOUSNESS [None]
